FAERS Safety Report 5307970-8 (Version None)
Quarter: 2007Q2

REPORT INFORMATION
  Report Type: 
  Country: None (occurrence: None)
  Receive Date: 20070426
  Receipt Date: 20070413
  Transmission Date: 20071010
  Serious: Yes (Hospitalization)
  Sender: FDA-Public Use
  Company Number: 2007GB00786

PATIENT
  Age: 65 Year
  Sex: Female

DRUGS (6)
  1. SEROQUEL [Suspect]
     Indication: MANIA
     Route: 048
     Dates: start: 20070314, end: 20070322
  2. AMLODIPINE [Concomitant]
     Indication: HYPERTENSION
     Route: 048
  3. CITALOPRAM HYDROBROMIDE [Concomitant]
     Indication: DEPRESSION
     Route: 048
     Dates: start: 20070314
  4. LITHIUM CARBONATE [Concomitant]
     Indication: BIPOLAR DISORDER
     Route: 048
  5. OMEGA-3 ACIDS [Concomitant]
     Route: 048
  6. REBOXETINE [Concomitant]
     Route: 048
     Dates: start: 20070112

REACTIONS (5)
  - CONFUSIONAL STATE [None]
  - DYSKINESIA [None]
  - DYSTONIA [None]
  - MEMORY IMPAIRMENT [None]
  - ORTHOSTATIC HYPOTENSION [None]
